FAERS Safety Report 8877713 (Version 3)
Quarter: 2013Q2

REPORT INFORMATION
  Report Type: Report from Study
  Country: MX (occurrence: MX)
  Receive Date: 20121024
  Receipt Date: 20130506
  Transmission Date: 20140414
  Serious: Yes (Other)
  Sender: FDA-Public Use
  Company Number: PHHY2012MX081715

PATIENT
  Age: 58 Year
  Sex: Female

DRUGS (6)
  1. GALVUS MET [Suspect]
     Indication: DIABETES MELLITUS
     Dosage: 2 DF, (850 MG METF/50 MG VILDA) DAILY
     Route: 048
     Dates: start: 201206
  2. EXFORGE [Suspect]
     Indication: HYPERTENSION
     Dosage: 1 DF (160 MG VALS AND 5 MG AMLO), DAILY
     Dates: start: 20120622
  3. EXFORGE HCT [Suspect]
     Indication: HYPERTENSION
     Dosage: 1 DF, (UKN VALS/10 MG AMLO/ UKN HYDRO) DAILY
     Dates: start: 201206
  4. TAFIL [Concomitant]
     Indication: DEPRESSION
     Dosage: 1 DF, DAILY
     Dates: start: 201204
  5. SERTRALINE [Concomitant]
     Indication: NERVOUSNESS
     Dosage: UNK UKN, UNK
     Dates: start: 201301
  6. SERTRALINE [Concomitant]
     Indication: DEPRESSION

REACTIONS (11)
  - Vascular rupture [Not Recovered/Not Resolved]
  - Visual impairment [Not Recovered/Not Resolved]
  - Depression [Not Recovered/Not Resolved]
  - Nervousness [Not Recovered/Not Resolved]
  - Influenza [Not Recovered/Not Resolved]
  - Oropharyngeal pain [Not Recovered/Not Resolved]
  - Cough [Not Recovered/Not Resolved]
  - Hypertension [Not Recovered/Not Resolved]
  - Head discomfort [Not Recovered/Not Resolved]
  - Dizziness [Not Recovered/Not Resolved]
  - Blood glucose increased [Not Recovered/Not Resolved]
